FAERS Safety Report 5394469-6 (Version None)
Quarter: 2007Q3

REPORT INFORMATION
  Report Type: 
  Country: None (occurrence: None)
  Receive Date: 20070723
  Receipt Date: 20070328
  Transmission Date: 20080115
  Serious: No
  Sender: FDA-Public Use
  Company Number: US-AMGEN-US217145

PATIENT
  Sex: Male

DRUGS (1)
  1. VECTIBIX [Suspect]
     Indication: DRUG USE FOR UNKNOWN INDICATION
     Route: 065
     Dates: start: 20070101, end: 20070301

REACTIONS (4)
  - CONFUSIONAL STATE [None]
  - HYPOAESTHESIA [None]
  - HYPOMAGNESAEMIA [None]
  - PARAESTHESIA [None]
